FAERS Safety Report 5941879-1 (Version None)
Quarter: 2008Q4

REPORT INFORMATION
  Report Type: 
  Country: None (occurrence: None)
  Receive Date: 20081104
  Receipt Date: 20081104
  Transmission Date: 20090506
  Serious: Yes (Other)
  Sender: FDA-Public Use
  Company Number: None

PATIENT
  Age: 69 Year
  Sex: Female
  Weight: 45.3597 kg

DRUGS (2)
  1. MYSOLINE [Suspect]
     Indication: EPILEPSY
     Dosage: 1 TABLET TWICE DAILY PO
     Route: 048
     Dates: start: 20080923, end: 20081030
  2. DILANTIN [Concomitant]

REACTIONS (2)
  - PRODUCT QUALITY ISSUE [None]
  - VISUAL IMPAIRMENT [None]
